FAERS Safety Report 14927216 (Version 1)
Quarter: 2018Q2

REPORT INFORMATION
  Report Type: Spontaneous
  Country: US (occurrence: US)
  Receive Date: 20180523
  Receipt Date: 20180523
  Transmission Date: 20180711
  Serious: No
  Sender: FDA-Public Use
  Company Number: US-PFIZER INC-2018205748

PATIENT
  Age: 9 Year
  Sex: Male

DRUGS (1)
  1. GENOTROPIN MQ [Suspect]
     Active Substance: SOMATROPIN
     Indication: BLOOD GROWTH HORMONE
     Dosage: 0.6 MG, UNK (0.6 MG 4 DAYS A WEEK=0.1 MG/KG/WEEK/MISSING SEVERAL DOSES WHEN ORDERED 6 DAYS A WEEK)

REACTIONS (2)
  - Weight gain poor [Unknown]
  - Drug dose omission [Unknown]
